FAERS Safety Report 6725814-4 (Version None)
Quarter: 2010Q2

REPORT INFORMATION
  Report Type: 
  Country: None (occurrence: None)
  Receive Date: 20100514
  Receipt Date: 20100502
  Transmission Date: 20101027
  Serious: Yes (Hospitalization)
  Sender: FDA-Public Use
  Company Number: PHHY2010MX28393

PATIENT
  Sex: Male

DRUGS (12)
  1. GALVUS MET [Suspect]
     Dosage: 500/50 MG
     Route: 048
     Dates: start: 20090501, end: 20100301
  2. EXFORGE [Suspect]
     Indication: HYPERTENSION
     Dosage: 1 DF, QD
     Route: 048
     Dates: start: 20100301
  3. RASILEZ [Suspect]
     Dosage: 150 MG, UNK
     Route: 048
     Dates: start: 20090501, end: 20100301
  4. MICARDIS [Concomitant]
     Dosage: 2 TABLETS
     Dates: start: 20090101, end: 20100301
  5. FUROSEMIDE [Concomitant]
     Dosage: 1 TABLET
     Dates: start: 20050101
  6. CALCITRIOL [Concomitant]
     Dosage: 1 TABLET
     Dates: start: 20090401
  7. CALCIUM [Concomitant]
     Dosage: THRICE DAILY
  8. VITAMIN B COMPLEX CAP [Concomitant]
     Dosage: ONE TABLET
     Dates: start: 20080101
  9. AMLODIPINE [Concomitant]
     Dosage: ONE TABLET
     Dates: start: 20100401
  10. DIAZEPAM [Concomitant]
     Dosage: 1 TABLET
     Dates: start: 20100101
  11. LYRICA [Concomitant]
     Dosage: 1 TABLET
     Dates: start: 20100401
  12. INSULINE [Concomitant]
     Dosage: UNK
     Dates: start: 20100301

REACTIONS (6)
  - ABDOMINAL PAIN UPPER [None]
  - DIALYSIS [None]
  - HAEMODIALYSIS [None]
  - POISONING [None]
  - URINARY RETENTION [None]
  - VOMITING [None]
